FAERS Safety Report 15900807 (Version 3)
Quarter: 2019Q1

REPORT INFORMATION
  Report Type: Spontaneous
  Country: US (occurrence: US)
  Receive Date: 20190201
  Receipt Date: 20190213
  Transmission Date: 20190417
  Serious: Yes (Other)
  Sender: FDA-Public Use
  Company Number: US-ASTRAZENECA-2019SE15506

PATIENT
  Age: 64 Year
  Sex: Female
  Weight: 109.8 kg

DRUGS (26)
  1. XANAX [Concomitant]
     Active Substance: ALPRAZOLAM
  2. CALCITRIOL. [Concomitant]
     Active Substance: CALCITRIOL
  3. FLUTICASONE. [Concomitant]
     Active Substance: FLUTICASONE
  4. FUROSEMIDE. [Concomitant]
     Active Substance: FUROSEMIDE
  5. CLONIDINE. [Concomitant]
     Active Substance: CLONIDINE
  6. METOPROLOL. [Concomitant]
     Active Substance: METOPROLOL
  7. ACETAMINOPHEN. [Concomitant]
     Active Substance: ACETAMINOPHEN
  8. NEXIUM [Suspect]
     Active Substance: ESOMEPRAZOLE MAGNESIUM
     Route: 048
     Dates: start: 2011, end: 2018
  9. NEXIUM [Suspect]
     Active Substance: ESOMEPRAZOLE MAGNESIUM
     Route: 048
     Dates: start: 20160310
  10. LOSARTAN. [Concomitant]
     Active Substance: LOSARTAN
  11. CEPHALEXIN. [Concomitant]
     Active Substance: CEPHALEXIN
  12. BRIMONIDINE [Concomitant]
     Active Substance: BRIMONIDINE TARTRATE
  13. OMEPRAZOLE. [Suspect]
     Active Substance: OMEPRAZOLE
     Route: 048
     Dates: start: 20170906
  14. SIMVASTATIN. [Concomitant]
     Active Substance: SIMVASTATIN
  15. RENAGEL [Concomitant]
     Active Substance: SEVELAMER HYDROCHLORIDE
  16. PANTOPRAZOLE [Suspect]
     Active Substance: PANTOPRAZOLE
     Route: 065
     Dates: start: 2011, end: 2018
  17. ZOLPIDEM [Concomitant]
     Active Substance: ZOLPIDEM\ZOLPIDEM TARTRATE
  18. OMEPRAZOLE. [Suspect]
     Active Substance: OMEPRAZOLE
     Route: 065
     Dates: start: 2011, end: 2018
  19. DEXILANT [Suspect]
     Active Substance: DEXLANSOPRAZOLE
     Route: 065
     Dates: start: 2011, end: 2018
  20. HYDRALAZINE [Concomitant]
     Active Substance: HYDRALAZINE HYDROCHLORIDE
  21. AMLODIPINE BESYLATE. [Concomitant]
     Active Substance: AMLODIPINE BESYLATE
  22. DIFLUCAN [Concomitant]
     Active Substance: FLUCONAZOLE
  23. TRAMADOL. [Concomitant]
     Active Substance: TRAMADOL
  24. MUPIROCIN. [Concomitant]
     Active Substance: MUPIROCIN
  25. DOXYCYCLINE HYCLATE. [Concomitant]
     Active Substance: DOXYCYCLINE HYCLATE
  26. METOPROLOL. [Concomitant]
     Active Substance: METOPROLOL
     Route: 048

REACTIONS (4)
  - Renal failure [Unknown]
  - Acute kidney injury [Unknown]
  - Chronic kidney disease [Unknown]
  - Rebound acid hypersecretion [Unknown]

NARRATIVE: CASE EVENT DATE: 20161208
